FAERS Safety Report 5333349-9 (Version None)
Quarter: 2007Q2

REPORT INFORMATION
  Report Type: 
  Country: None (occurrence: None)
  Receive Date: 20070524
  Receipt Date: 20070510
  Transmission Date: 20071010
  Serious: Yes (Other)
  Sender: FDA-Public Use
  Company Number: US-AMGEN-KDL223400

PATIENT
  Sex: Female
  Weight: 72.5 kg

DRUGS (6)
  1. ENBREL [Suspect]
     Indication: POLYARTHRITIS
     Route: 058
     Dates: start: 20070202, end: 20070301
  2. GLYBURIDE [Suspect]
  3. ALLEGRA [Concomitant]
     Dates: start: 20060901
  4. LO/OVRAL [Concomitant]
     Dates: start: 20060901
  5. NEURONTIN [Concomitant]
     Dates: start: 20010101
  6. TRAMADOL HCL [Concomitant]
     Dates: start: 20070401

REACTIONS (3)
  - BLOOD IRON DECREASED [None]
  - SYNCOPE [None]
  - VAGINAL HAEMORRHAGE [None]
